FAERS Safety Report 6501301-3 (Version None)
Quarter: 2009Q4

REPORT INFORMATION
  Report Type: 
  Country: None (occurrence: None)
  Receive Date: 20091216
  Receipt Date: 20091130
  Transmission Date: 20100525
  Serious: Yes (Life-Threatening)
  Sender: FDA-Public Use
  Company Number: US-BAYER-200917384BCC

PATIENT
  Age: 57 Year
  Sex: Female
  Weight: 77 kg

DRUGS (13)
  1. ALKA-SELTZER PLUS LIQUID GELS NIGHT [Suspect]
     Indication: NASOPHARYNGITIS
     Dosage: TOTAL DAILY DOSE: 2 DF
     Route: 048
     Dates: start: 20091126
  2. INSULIN [Concomitant]
     Route: 065
  3. 81MG ASPIRIN CVS BRAND [Concomitant]
     Route: 065
  4. ZETIA [Concomitant]
     Route: 065
  5. BIOTIN [Concomitant]
     Route: 065
  6. POTASSIUM GLUCONATE TAB [Concomitant]
     Route: 065
  7. LOVAZA [Concomitant]
     Route: 065
  8. TRIPLE FLEX [Concomitant]
     Route: 065
  9. COLLAGEN [Concomitant]
     Route: 065
  10. EVENING PRIMROSE OIL [Concomitant]
     Route: 065
  11. COQ10 [Concomitant]
     Route: 065
  12. FOLIC ACID [Concomitant]
     Route: 065
  13. CINNAMON [Concomitant]
     Route: 065

REACTIONS (2)
  - FATIGUE [None]
  - SOMNOLENCE [None]
